FAERS Safety Report 16783174 (Version 1)
Quarter: 2019Q3

REPORT INFORMATION
  Report Type: Spontaneous
  Country: US (occurrence: US)
  Receive Date: 20190907
  Receipt Date: 20190907
  Transmission Date: 20191005
  Serious: No
  Sender: FDA-Public Use
  Company Number: US-009507513-1909USA001952

PATIENT
  Age: 24 Year
  Sex: Female
  Weight: 71.66 kg

DRUGS (2)
  1. NEXPLANON [Suspect]
     Active Substance: ETONOGESTREL
     Dosage: 1 IMPLANT
     Route: 059
     Dates: start: 20190828
  2. NEXPLANON [Suspect]
     Active Substance: ETONOGESTREL
     Dosage: 1 IMPLANT
     Dates: start: 2016, end: 20190828

REACTIONS (4)
  - Implant site pain [Unknown]
  - Device deployment issue [Recovered/Resolved]
  - Complication of device removal [Recovered/Resolved]
  - Medical device site discomfort [Unknown]

NARRATIVE: CASE EVENT DATE: 2016
